FAERS Safety Report 10337122 (Version 2)
Quarter: 2014Q3

REPORT INFORMATION
  Report Type: Report from Study
  Country: US (occurrence: US)
  Receive Date: 20140723
  Receipt Date: 20140723
  Transmission Date: 20150326
  Serious: Yes (Other)
  Sender: FDA-Public Use
  Company Number: US-TEVA-482722USA

PATIENT
  Age: 36 Year
  Sex: Female
  Weight: 69.92 kg

DRUGS (4)
  1. COPAXONE [Suspect]
     Active Substance: GLATIRAMER ACETATE
     Dates: start: 201309, end: 20131212
  2. VITAMIN D [Concomitant]
     Active Substance: CHOLECALCIFEROL
  3. PRENATAL VITAMINS [Concomitant]
     Active Substance: VITAMINS
     Dates: start: 201307
  4. COPAXONE [Suspect]
     Active Substance: GLATIRAMER ACETATE
     Indication: MULTIPLE SCLEROSIS
     Dates: start: 20120518, end: 201307

REACTIONS (2)
  - Umbilical cord abnormality [Unknown]
  - Exposure during pregnancy [Unknown]

NARRATIVE: CASE EVENT DATE: 201403
